FAERS Safety Report 8785659 (Version 6)
Quarter: 2014Q1

REPORT INFORMATION
  Report Type: Report from Study
  Country: DE (occurrence: DE)
  Receive Date: 20120914
  Receipt Date: 20140324
  Transmission Date: 20141002
  Serious: Yes (Hospitalization)
  Sender: FDA-Public Use
  Company Number: DE-UCBSA-065485

PATIENT
  Age: 77 Year
  Sex: Female
  Weight: 68 kg

DRUGS (4)
  1. CERTOLIZUMAB PEGOL [Suspect]
     Indication: RHEUMATOID ARTHRITIS
     Dosage: DOSE:200 MG
     Route: 058
     Dates: start: 20120327, end: 20120807
  2. PREDNISOLONE [Concomitant]
     Indication: RHEUMATOID ARTHRITIS
     Dates: start: 19961107
  3. AMLODIPIN [Concomitant]
     Indication: HYPERTENSION
     Dates: start: 201004
  4. FALITHROM [Concomitant]
     Indication: CARDIAC FAILURE
     Dates: start: 201004, end: 201208

REACTIONS (1)
  - Neoplasm malignant [Unknown]
